FAERS Safety Report 5775598-1 (Version None)
Quarter: 2008Q2

REPORT INFORMATION
  Report Type: 
  Country: None (occurrence: None)
  Receive Date: 20080617
  Receipt Date: 20080605
  Transmission Date: 20081010
  Serious: Yes (Other)
  Sender: FDA-Public Use
  Company Number: FR-PFIZER INC-2008049312

PATIENT
  Age: 70 Year
  Sex: Male

DRUGS (1)
  1. LYRICA [Suspect]

REACTIONS (4)
  - DISINHIBITION [None]
  - EUPHORIC MOOD [None]
  - INCREASED APPETITE [None]
  - WEIGHT INCREASED [None]
